FAERS Safety Report 6505568-7 (Version None)
Quarter: 2009Q4

REPORT INFORMATION
  Report Type: 
  Country: None (occurrence: None)
  Receive Date: 20091217
  Receipt Date: 20091217
  Transmission Date: 20100525
  Serious: Yes (Life-Threatening)
  Sender: FDA-Public Use
  Company Number: None

PATIENT
  Age: 65 Year
  Sex: Female
  Weight: 81.6475 kg

DRUGS (1)
  1. CRESTOR [Suspect]
     Dosage: 5 MG ONCE DAILY IN AM
     Dates: start: 20091010, end: 20091030

REACTIONS (3)
  - MOVEMENT DISORDER [None]
  - MYALGIA [None]
  - PAIN [None]
